FAERS Safety Report 19790874 (Version 1)
Quarter: 2021Q3

REPORT INFORMATION
  Report Type: Spontaneous
  Country: US (occurrence: US)
  Receive Date: 20210906
  Receipt Date: 20210906
  Transmission Date: 20211014
  Serious: No
  Sender: FDA-Public Use
  Company Number: US-TEVA-2021-US-1947566

PATIENT
  Age: 70 Year
  Sex: Female
  Weight: 86.18 kg

DRUGS (4)
  1. CINQAIR [Suspect]
     Active Substance: RESLIZUMAB
     Indication: INTERSTITIAL LUNG DISEASE
     Dosage: 6 MONTHS AGO THE PATIENT STARTED TAKING CINQAIR EVERY 4 WEEKS
     Route: 065
     Dates: start: 2021
  2. CINQAIR [Suspect]
     Active Substance: RESLIZUMAB
     Dosage: INFUSION
     Route: 065
     Dates: start: 20210809
  3. SYMBICORT [Concomitant]
     Active Substance: BUDESONIDE\FORMOTEROL FUMARATE DIHYDRATE
     Dosage: 2 PUFFS TWICE DAILY
  4. PREDNISONE. [Concomitant]
     Active Substance: PREDNISONE

REACTIONS (8)
  - Cough [Unknown]
  - Feeling abnormal [Unknown]
  - Asthenia [Unknown]
  - Paraesthesia [Unknown]
  - Product use in unapproved indication [Unknown]
  - Drug ineffective [Unknown]
  - Dizziness [Unknown]
  - Off label use [Unknown]

NARRATIVE: CASE EVENT DATE: 2021
